FAERS Safety Report 9169151 (Version 1)
Quarter: 2013Q1

REPORT INFORMATION
  Report Type: Spontaneous
  Country: FR (occurrence: FR)
  Receive Date: 20130318
  Receipt Date: 20130318
  Transmission Date: 20140127
  Serious: Yes (Other)
  Sender: FDA-Public Use
  Company Number: FR-PFIZER INC-2013082859

PATIENT
  Age: 26 Year
  Sex: Female
  Weight: 99 kg

DRUGS (1)
  1. STEDIRIL [Suspect]
     Indication: CONTRACEPTION
     Dosage: ETHINYLESTRADIOL 50 ?G/ NORGESTREL 500 ?G, 1X/DAY
     Route: 048
     Dates: start: 2005, end: 20121222

REACTIONS (2)
  - Hepatocellular injury [Recovered/Resolved]
  - Alanine aminotransferase increased [Recovered/Resolved]
